FAERS Safety Report 24691582 (Version 1)
Quarter: 2024Q4

REPORT INFORMATION
  Report Type: Spontaneous
  Country: CH (occurrence: CH)
  Receive Date: 20241203
  Receipt Date: 20241203
  Transmission Date: 20250115
  Serious: Yes (Life-Threatening, Hospitalization, Other)
  Sender: PFIZER
  Company Number: None

PATIENT
  Age: 74 Year
  Sex: Male
  Weight: 77 kg

DRUGS (37)
  1. FRAGMIN [Suspect]
     Active Substance: DALTEPARIN SODIUM
     Dosage: 5000 I.U. DALTEPARIN/ 0.2 ML
     Route: 058
     Dates: start: 20240903, end: 20240903
  2. COLCHICINE [Suspect]
     Active Substance: COLCHICINE
     Indication: Pericarditis constrictive
     Dosage: 5 MG, 1X/DAY 1 MG COLCHICIN PER TABLET, 5-0-0.5-0
     Route: 048
     Dates: start: 20240902, end: 20240903
  3. COLCHICINE [Suspect]
     Active Substance: COLCHICINE
     Dosage: 0.5 MG, 1X/DAY, 1 MG COLCHICIN PER TABLET, 5-0-0.5-0
     Route: 048
     Dates: start: 20240902, end: 20240903
  4. ERYTHROMYCIN [Suspect]
     Active Substance: ERYTHROMYCIN
     Dosage: UNK
     Dates: end: 202409
  5. AMOXICILLIN\CLAVULANATE POTASSIUM [Suspect]
     Active Substance: AMOXICILLIN\CLAVULANATE POTASSIUM
     Dosage: 1 DF, 3X/DAY
     Route: 048
     Dates: start: 20240902
  6. ONDANSETRON [Suspect]
     Active Substance: ONDANSETRON
     Dosage: 4 MG, 2X/DAY
     Route: 040
     Dates: start: 20240902
  7. NOVALGIN (METAMIZOLE SODIUM) [Suspect]
     Active Substance: METAMIZOLE SODIUM
     Dosage: 1G METAMIZOLE/ 2 ML
     Route: 040
     Dates: start: 20240902
  8. METOCLOPRAMIDE HYDROCHLORIDE [Suspect]
     Active Substance: METOCLOPRAMIDE HYDROCHLORIDE
     Dosage: 10 MG METOCLOPRAMIDE/ 2 ML
     Route: 040
     Dates: start: 20240902
  9. ASPIRIN [Suspect]
     Active Substance: ASPIRIN
     Dosage: 100 MG
     Route: 048
  10. ATORVASTATIN CALCIUM [Suspect]
     Active Substance: ATORVASTATIN CALCIUM
     Dosage: 40 MG, 1X/DAY
     Route: 048
  11. EZETIMIBE\ROSUVASTATIN ZINC [Suspect]
     Active Substance: EZETIMIBE\ROSUVASTATIN ZINC
     Dosage: 1 DF, 1X/DAY
     Route: 048
  12. TROSPIUM CHLORIDE [Suspect]
     Active Substance: TROSPIUM CHLORIDE
     Dosage: 10 MG, 1X/DAY
     Route: 048
  13. TAMSULOSIN HYDROCHLORIDE [Suspect]
     Active Substance: TAMSULOSIN HYDROCHLORIDE
     Dosage: 0.4 MG, 1X/DAY
     Route: 048
  14. TORSEMIDE [Suspect]
     Active Substance: TORSEMIDE
     Dosage: 10 MG, 1X/DAY, 5 MG TORASEMIDE PER TABLET (3-0-0-0)
     Route: 048
  15. TORSEMIDE [Suspect]
     Active Substance: TORSEMIDE
     Dosage: 30 MG, 1X/DAY, 10 MG TORASEMIDE PER TABLET (3-0-0-0)
     Route: 048
  16. PIPAMPERONE [Suspect]
     Active Substance: PIPAMPERONE
     Dosage: 40 MG, 1X/DAY
     Route: 048
  17. PANTOZOL [Suspect]
     Active Substance: PANTOPRAZOLE SODIUM
     Dosage: 40 MG, 1X/DAY
     Route: 048
  18. BISOPROLOL [Suspect]
     Active Substance: BISOPROLOL
     Dosage: 2.5 MG, 1X/DAY
     Route: 048
  19. BISOPROLOL [Suspect]
     Active Substance: BISOPROLOL
     Dosage: 5 MG
     Route: 048
  20. CORDARONE [Suspect]
     Active Substance: AMIODARONE HYDROCHLORIDE
     Dosage: 200 MG, 1X/DAY
     Route: 048
     Dates: end: 202409
  21. JARDIANCE [Concomitant]
     Active Substance: EMPAGLIFLOZIN
     Dosage: 10 MG, 1X/DAY
     Route: 048
  22. MOVICOL [Concomitant]
     Active Substance: POLYETHYLENE GLYCOL 3350\POTASSIUM CHLORIDE\SODIUM BICARBONATE\SODIUM CHLORIDE
     Dosage: 1 DF, 1X/DAY
     Route: 048
  23. FLUTICASONE FUROATE\VILANTEROL TRIFENATATE [Concomitant]
     Active Substance: FLUTICASONE FUROATE\VILANTEROL TRIFENATATE
     Dosage: 1 DF, 1X/DAY, 184 UG FLUTICASONFUROAT/ 22 UG VILANTEROL PER SPRAY SHOT
     Route: 055
  24. FLUTICASONE FUROATE\VILANTEROL TRIFENATATE [Concomitant]
     Active Substance: FLUTICASONE FUROATE\VILANTEROL TRIFENATATE
     Dosage: 1 DF
     Route: 055
     Dates: start: 20240901, end: 20240901
  25. FLUTICASONE FUROATE\VILANTEROL TRIFENATATE [Concomitant]
     Active Substance: FLUTICASONE FUROATE\VILANTEROL TRIFENATATE
     Dosage: 1 DF
     Route: 055
     Dates: start: 20240903, end: 20240903
  26. DAPAGLIFLOZIN [Concomitant]
     Active Substance: DAPAGLIFLOZIN
     Dosage: 10 MG, 1X/DAY
     Route: 048
  27. CALCIUM CHLORIDE\MAGNESIUM CHLORIDE\MALIC ACID\POTASSIUM CHLORIDE\SODI [Concomitant]
     Active Substance: CALCIUM CHLORIDE\MAGNESIUM CHLORIDE\MALIC ACID\POTASSIUM CHLORIDE\SODIUM ACETATE\SODIUM CHLORIDE
     Dosage: 1000 ML
     Route: 040
     Dates: start: 20240902
  28. METFORMIN [Concomitant]
     Active Substance: METFORMIN HYDROCHLORIDE
     Dosage: 500 MG, 1X/DAY
     Route: 048
  29. TRESIBA [Concomitant]
     Active Substance: INSULIN DEGLUDEC
     Dosage: 100 IU/ML, 1X/DAY
     Route: 058
  30. TRESIBA [Concomitant]
     Active Substance: INSULIN DEGLUDEC
     Dosage: 100 IU/ML
     Route: 058
     Dates: start: 20240901, end: 20240901
  31. TRESIBA [Concomitant]
     Active Substance: INSULIN DEGLUDEC
     Dosage: 100 DF
     Route: 058
     Dates: start: 20240903, end: 20240903
  32. MELATONIN [Concomitant]
     Active Substance: MELATONIN
     Dosage: 4 MG, 1X/DAY
     Route: 048
  33. OXYCODONE HYDROCHLORIDE [Concomitant]
     Active Substance: OXYCODONE HYDROCHLORIDE
     Route: 048
     Dates: start: 20240903
  34. PROSTAPLANT [SERENOA REPENS EXTRACT;URTICA DIOICA EXTRACT] [Concomitant]
     Dosage: 1 DF, 1X/DAY
     Route: 048
  35. TETRAHYDROZOLINE HYDROCHLORIDE [Concomitant]
     Active Substance: TETRAHYDROZOLINE HYDROCHLORIDE
     Dosage: 2 DF, 4X/DAY,
     Route: 047
  36. SERENOA REPENS WHOLE [Concomitant]
     Active Substance: SERENOA REPENS WHOLE
     Dosage: 320 MG, 1X/DAY
     Route: 048
  37. ACETAMINOPHEN [Concomitant]
     Active Substance: ACETAMINOPHEN
     Dosage: UNK

REACTIONS (11)
  - Toxicity to various agents [Recovered/Resolved]
  - Cardiogenic shock [Not Recovered/Not Resolved]
  - Oxygen saturation decreased [Not Recovered/Not Resolved]
  - Anuria [Unknown]
  - Leukopenia [Recovered/Resolved]
  - Thrombocytopenia [Recovered/Resolved]
  - Renal failure [Recovered/Resolved]
  - Mucosal disorder [Unknown]
  - Azotaemia [Unknown]
  - Prescribed overdose [Not Recovered/Not Resolved]
  - Incorrect dose administered [Not Recovered/Not Resolved]

NARRATIVE: CASE EVENT DATE: 20240902
